FAERS Safety Report 18975753 (Version 1)
Quarter: 2021Q1

REPORT INFORMATION
  Report Type: Spontaneous
  Country: CN (occurrence: CN)
  Receive Date: 20210306
  Receipt Date: 20210306
  Transmission Date: 20210420
  Serious: Yes (Other)
  Sender: FDA-Public Use
  Company Number: CN-ASTRAZENECA-2021A096795

PATIENT
  Age: 69 Year
  Sex: Male

DRUGS (5)
  1. APATINIB [Concomitant]
     Active Substance: APATINIB
     Indication: LUNG ADENOCARCINOMA STAGE I
     Route: 048
  2. CARBOPLATIN. [Concomitant]
     Active Substance: CARBOPLATIN
     Indication: LUNG ADENOCARCINOMA STAGE I
     Dosage: 4?CYCLE
     Route: 065
  3. GEFITINIB. [Suspect]
     Active Substance: GEFITINIB
     Indication: LUNG ADENOCARCINOMA STAGE I
     Route: 048
  4. PEMETREXED. [Concomitant]
     Active Substance: PEMETREXED
     Indication: LUNG ADENOCARCINOMA STAGE I
     Dosage: 4?CYCLE
     Route: 065
  5. OSIMERTINIB. [Suspect]
     Active Substance: OSIMERTINIB
     Indication: LUNG ADENOCARCINOMA STAGE I
     Route: 048

REACTIONS (4)
  - Drug resistance [Unknown]
  - EGFR gene mutation [Unknown]
  - K-ras gene mutation [Unknown]
  - Malignant neoplasm progression [Unknown]
